FAERS Safety Report 6564722-9 (Version None)
Quarter: 2010Q1

REPORT INFORMATION
  Report Type: 
  Country: None (occurrence: None)
  Receive Date: 20100201
  Receipt Date: 20100127
  Transmission Date: 20100710
  Serious: Yes (Death)
  Sender: FDA-Public Use
  Company Number: US-ASTRAZENECA-2010SE03656

PATIENT
  Age: 94 Year
  Sex: Male

DRUGS (1)
  1. METOPROLOL SUCCINATE [Suspect]
     Route: 048

REACTIONS (1)
  - DEATH [None]
